FAERS Safety Report 17120578 (Version 1)
Quarter: 2019Q4

REPORT INFORMATION
  Report Type: Spontaneous
  Country: BR (occurrence: BR)
  Receive Date: 20191206
  Receipt Date: 20191206
  Transmission Date: 20200122
  Serious: Yes (Other)
  Sender: FDA-Public Use
  Company Number: BR-ALLERGAN-1948862US

PATIENT
  Sex: Female

DRUGS (3)
  1. BOTOX [Suspect]
     Active Substance: ONABOTULINUMTOXINA
     Indication: SKIN WRINKLING
     Dosage: UNK UNK, SINGLE
     Route: 065
     Dates: start: 20191122, end: 20191122
  2. BOTOX [Suspect]
     Active Substance: ONABOTULINUMTOXINA
     Dosage: UNK, SINGLE
     Route: 065
     Dates: start: 20191122, end: 20191122
  3. BOTOX [Suspect]
     Active Substance: ONABOTULINUMTOXINA
     Dosage: UNK, SINGLE
     Route: 065
     Dates: start: 20191122, end: 20191122

REACTIONS (9)
  - Chest discomfort [Recovering/Resolving]
  - Dry eye [Recovering/Resolving]
  - Dry mouth [Recovering/Resolving]
  - Botulism [Recovering/Resolving]
  - Areflexia [Recovering/Resolving]
  - Abdominal pain upper [Recovering/Resolving]
  - Dysentery [Recovering/Resolving]
  - Dysphagia [Recovering/Resolving]
  - Muscular weakness [Recovering/Resolving]
